FAERS Safety Report 9349911 (Version 1)
Quarter: 2013Q2

REPORT INFORMATION
  Report Type: Spontaneous
  Country: NL (occurrence: NL)
  Receive Date: 20130614
  Receipt Date: 20130614
  Transmission Date: 20140414
  Serious: Yes (Hospitalization, Other)
  Sender: FDA-Public Use
  Company Number: PHHY2013NL060717

PATIENT
  Age: 4 Year
  Sex: Male

DRUGS (5)
  1. VORICONAZOLE [Suspect]
     Indication: ANTIFUNGAL PROPHYLAXIS
  2. METHOTREXATE [Interacting]
     Dosage: (UNKNOWN DOSE)
     Route: 037
  3. METHOTREXATE [Interacting]
     Dosage: (UNKNOWN DOSE)
     Route: 037
  4. METHOTREXATE [Interacting]
     Dosage: 3000-5000 MG/M2
     Route: 037
  5. CYTARABINE [Suspect]

REACTIONS (4)
  - Photosensitivity reaction [Recovered/Resolved]
  - Cheilitis [Not Recovered/Not Resolved]
  - Drug interaction [Unknown]
  - Rash macular [Unknown]
